FAERS Safety Report 5393101-5 (Version None)
Quarter: 2007Q3

REPORT INFORMATION
  Report Type: 
  Country: None (occurrence: None)
  Receive Date: 20070718
  Receipt Date: 20070706
  Transmission Date: 20080115
  Serious: Yes (Hospitalization, Other)
  Sender: FDA-Public Use
  Company Number: STI-2007-00903

PATIENT
  Age: 16 Year
  Sex: Male

DRUGS (3)
  1. 222A ERYTHROMYCIN TOPICAL (UNSPECIFIED) (ERYTHROMYCIN) [Suspect]
     Indication: ACNE
     Dates: start: 20070313, end: 20070320
  2. MINOCIN [Suspect]
     Dosage: ORAL,
     Route: 048
     Dates: start: 20060801, end: 20060801
  3. MINOCIN [Suspect]
     Dosage: ORAL,
     Route: 048
     Dates: start: 20060301

REACTIONS (10)
  - ARTHRALGIA [None]
  - BLOOD IMMUNOGLOBULIN G INCREASED [None]
  - C-REACTIVE PROTEIN INCREASED [None]
  - FEELING ABNORMAL [None]
  - JOINT EFFUSION [None]
  - NEUTROPHILIA [None]
  - PYREXIA [None]
  - RED BLOOD CELL SEDIMENTATION RATE INCREASED [None]
  - THROMBOCYTOPENIA [None]
  - WEIGHT DECREASED [None]
